FAERS Safety Report 10739934 (Version 1)
Quarter: 2015Q1

REPORT INFORMATION
  Report Type: Spontaneous
  Country: US (occurrence: US)
  Receive Date: 20150127
  Receipt Date: 20150127
  Transmission Date: 20150721
  Serious: Yes (Hospitalization)
  Sender: FDA-Public Use
  Company Number: US-JNJFOC-20150111579

PATIENT
  Age: 28 Year
  Sex: Male

DRUGS (3)
  1. PARACETAMOL [Suspect]
     Active Substance: ACETAMINOPHEN
     Route: 048
  2. PARACETAMOL [Suspect]
     Active Substance: ACETAMINOPHEN
     Indication: SUICIDE ATTEMPT
     Route: 048
     Dates: start: 20131011, end: 20131011
  3. ALCOHOL. [Suspect]
     Active Substance: ALCOHOL
     Indication: SUICIDE ATTEMPT
     Route: 048
     Dates: start: 20131011, end: 20131011

REACTIONS (6)
  - Intentional overdose [Recovering/Resolving]
  - Abdominal discomfort [Recovered/Resolved]
  - Hyponatraemia [Recovered/Resolved]
  - Haemoglobinuria [Unknown]
  - Vomiting [Recovered/Resolved]
  - Hepatic function abnormal [Recovering/Resolving]

NARRATIVE: CASE EVENT DATE: 20131011
